FAERS Safety Report 10262301 (Version 1)
Quarter: 2014Q2

REPORT INFORMATION
  Report Type: Spontaneous
  Country: US (occurrence: None)
  Receive Date: 20140624
  Receipt Date: 20140624
  Transmission Date: 20141212
  Serious: Yes (Disabling)
  Sender: FDA-Public Use
  Company Number: None

PATIENT
  Age: 75 Year
  Sex: Female
  Weight: 91.63 kg

DRUGS (14)
  1. ATORVASTATIN [Suspect]
     Indication: BLOOD CHOLESTEROL INCREASED
     Dosage: 40 MG, BY MOUTH, ONE TABLET DAILY IN THE EVENING
     Route: 048
     Dates: start: 201207, end: 201403
  2. CALCIUM CITRATE-VITAMIN D [Suspect]
     Dosage: 1 TABLET DAILY PO
     Route: 048
  3. CHOLECALCIFEROL [Suspect]
     Dosage: 1000 UNITS DAILY PO
     Route: 048
  4. CYCLOSPORINE [Suspect]
     Dosage: 1 DROP  2 TIMES DAY PLACE INTO BOTH EYES
     Route: 047
  5. FLUTICASONE [Suspect]
     Dosage: 2 SPRAYS BY NASAL ROUTE DAILY
     Route: 045
  6. HYDROXYCHLOROQUINE [Suspect]
     Dosage: 1 TABLET PO 2 TIMES DAILY
     Route: 048
  7. IRON-VITAMINS [Suspect]
     Route: 048
  8. MAGNESIUM HYDROXIDE [Suspect]
     Route: 048
  9. OMEGA 3 [Suspect]
     Route: 048
  10. PHENOBARBITAL [Suspect]
     Dosage: 60 MG 2 TIMES DAILY PO 2 TABS
     Route: 048
  11. PILOCARPINE [Suspect]
     Dosage: 1 TABLET PO 3 TIMES DAILY
     Route: 048
  12. RABEPRAZOLE [Suspect]
     Dosage: 1 TABLET PO DAILY
     Route: 048
  13. ROSUVASTATIN [Suspect]
     Dosage: 1 TABLET PO NIGHTLY
     Route: 048
  14. ZOLEDRONIC ACID [Suspect]
     Dosage: INJECT INTO THE VEIN AT CLINIC YEARLY
     Route: 042

REACTIONS (4)
  - Neck pain [None]
  - Headache [None]
  - Hypoaesthesia [None]
  - Pain [None]
